FAERS Safety Report 10658019 (Version 1)
Quarter: 2014Q4

REPORT INFORMATION
  Report Type: Spontaneous
  Country: US (occurrence: US)
  Receive Date: 20141217
  Receipt Date: 20141217
  Transmission Date: 20150529
  Serious: No
  Sender: FDA-Public Use
  Company Number: US-GLAXOSMITHKLINE-A1059033A

PATIENT

DRUGS (7)
  1. LOSARTAN [Concomitant]
     Active Substance: LOSARTAN
  2. VOTRIENT [Suspect]
     Active Substance: PAZOPANIB HYDROCHLORIDE
     Indication: RENAL CELL CARCINOMA
     Route: 048
     Dates: start: 201307, end: 201401
  3. SIMVASTATIN. [Concomitant]
     Active Substance: SIMVASTATIN
  4. METOPROLOL [Concomitant]
     Active Substance: METOPROLOL
  5. CALCIUM WITH VITAMIN D [Concomitant]
     Active Substance: CALCIUM\VITAMIN D
  6. FUROSEMIDE. [Concomitant]
     Active Substance: FUROSEMIDE
  7. PRADAXA [Concomitant]
     Active Substance: DABIGATRAN ETEXILATE MESYLATE

REACTIONS (1)
  - Drug ineffective [Unknown]
